FAERS Safety Report 7970005-2 (Version None)
Quarter: 2011Q4

REPORT INFORMATION
  Report Type: 
  Country: None (occurrence: None)
  Receive Date: 20111212
  Receipt Date: 20111206
  Transmission Date: 20120403
  Serious: Yes (Other)
  Sender: FDA-Public Use
  Company Number: GB-US-EMD SERONO, INC.-7100214

PATIENT
  Sex: Male

DRUGS (2)
  1. STEROIDS [Concomitant]
     Indication: ADRENAL DISORDER
     Route: 048
  2. SAIZEN [Suspect]
     Indication: GROWTH HORMONE DEFICIENCY
     Route: 058
     Dates: end: 20111206

REACTIONS (1)
  - SKIN PAPILLOMA [None]
